FAERS Safety Report 10228972 (Version 1)
Quarter: 2014Q2

REPORT INFORMATION
  Report Type: Spontaneous
  Country: JP (occurrence: JP)
  Receive Date: 20140610
  Receipt Date: 20140610
  Transmission Date: 20141212
  Serious: Yes (Other)
  Sender: FDA-Public Use
  Company Number: JP-GLAXOSMITHKLINE-B1001096A

PATIENT
  Age: 49 Year
  Sex: Male

DRUGS (5)
  1. FLOLAN [Suspect]
     Indication: PRODUCT USED FOR UNKNOWN INDICATION
     Route: 042
  2. VOLIBRIS [Suspect]
     Indication: PRODUCT USED FOR UNKNOWN INDICATION
     Route: 048
  3. ADCIRCA [Concomitant]
     Route: 048
  4. TORASEMIDE [Concomitant]
     Route: 048
  5. FUROSEMIDE [Concomitant]
     Route: 048

REACTIONS (1)
  - Immunoglobulin G4 related sclerosing disease [Unknown]
